FAERS Safety Report 6787864-1 (Version None)
Quarter: 2010Q2

REPORT INFORMATION
  Report Type: 
  Country: None (occurrence: None)
  Receive Date: 20100623
  Receipt Date: 20071218
  Transmission Date: 20101027
  Serious: No
  Sender: FDA-Public Use
  Company Number: US-PFIZER INC-2007096815

PATIENT
  Sex: Female
  Weight: 51.71 kg

DRUGS (5)
  1. AROMASIN [Suspect]
     Indication: PROPHYLAXIS
     Route: 048
     Dates: start: 20070801, end: 20071115
  2. PREDNISONE [Concomitant]
  3. OTHER RESPIRATORY SYSTEM PRODUCTS [Concomitant]
     Indication: ASTHMA
     Route: 055
  4. FEMARA [Concomitant]
  5. TAMOXIFEN [Concomitant]

REACTIONS (5)
  - ASTHMA [None]
  - FEELING HOT [None]
  - PAIN IN EXTREMITY [None]
  - PARAESTHESIA [None]
  - WEIGHT INCREASED [None]
